FAERS Safety Report 8211463-8 (Version None)
Quarter: 2012Q1

REPORT INFORMATION
  Report Type: 
  Country: None (occurrence: None)
  Receive Date: 20120228
  Receipt Date: 20110928
  Transmission Date: 20120608
  Serious: Yes (Hospitalization)
  Sender: FDA-Public Use
  Company Number: RB-32548-2011

PATIENT
  Sex: Female

DRUGS (4)
  1. BUTRANS (NOT SPECIFIED) [Suspect]
     Indication: BACK PAIN
     Dosage: 10; 20 MCG/HOUR TRANSDERMAL
     Route: 062
     Dates: start: 20110801, end: 20110801
  2. BUTRANS (NOT SPECIFIED) [Suspect]
     Indication: BACK PAIN
     Dosage: 10; 20 MCG/HOUR TRANSDERMAL
     Route: 062
     Dates: start: 20110801
  3. MS CONTIN [Suspect]
     Indication: BACK PAIN
     Dosage: ORAL
     Route: 048
     Dates: start: 20110701, end: 20110701
  4. SUBUTEX [Suspect]
     Indication: BACK PAIN
     Dosage: DOSE RANGED FROM 1-4 TABLETS, DAILY, SUBLINGUAL
     Route: 060
     Dates: start: 20040101, end: 20110701

REACTIONS (4)
  - OFF LABEL USE [None]
  - BACK PAIN [None]
  - PRURITUS [None]
  - RASH [None]
